FAERS Safety Report 12806510 (Version 1)
Quarter: 2016Q4

REPORT INFORMATION
  Report Type: Spontaneous
  Country: US (occurrence: US)
  Receive Date: 20161004
  Receipt Date: 20161004
  Transmission Date: 20170207
  Serious: No
  Sender: FDA-Public Use
  Company Number: US-JNJFOC-20160910962

PATIENT
  Age: 51 Year
  Sex: Male
  Weight: 90.72 kg

DRUGS (2)
  1. MENS ROGAINE EXTRA STRENGTH [Suspect]
     Active Substance: MINOXIDIL
     Indication: ALOPECIA
     Dosage: HALF A CAPFUL
     Route: 061
     Dates: start: 20160902, end: 20160909
  2. MENS ROGAINE EXTRA STRENGTH [Suspect]
     Active Substance: MINOXIDIL
     Route: 061

REACTIONS (2)
  - Alopecia [Not Recovered/Not Resolved]
  - Unintentional use for unapproved indication [Not Recovered/Not Resolved]

NARRATIVE: CASE EVENT DATE: 20160902
